FAERS Safety Report 5234278-1 (Version None)
Quarter: 2007Q1

REPORT INFORMATION
  Report Type: 
  Country: None (occurrence: None)
  Receive Date: 20070209
  Receipt Date: 20070130
  Transmission Date: 20070707
  Serious: Yes (Life-Threatening, Hospitalization, Other)
  Sender: FDA-Public Use
  Company Number: PHEH2006US13786

PATIENT
  Age: 31 Year
  Sex: Male
  Weight: 59.41 kg

DRUGS (7)
  1. EXJADE [Suspect]
     Indication: SICKLE CELL ANAEMIA
     Dosage: 1000 MG, QD
     Route: 048
     Dates: start: 20061001, end: 20061102
  2. HYDREA [Concomitant]
  3. ACTONEL [Concomitant]
     Indication: OSTEOPOROSIS
     Dosage: 35 MG, QW
  4. LISINOPRIL [Concomitant]
     Indication: CARDIOMYOPATHY
     Dosage: 2.5 MG, QD
  5. PREDNISONE [Concomitant]
     Indication: SARCOIDOSIS
     Dosage: 15 MG, QD
  6. SYNTHROID [Concomitant]
     Dosage: 200 UG, QD
  7. CALTRATE 600 + VITAMIN D [Concomitant]
     Dosage: 600/200MG, 1-2X/DAY

REACTIONS (28)
  - ATRIAL HYPERTROPHY [None]
  - BIOPSY SKIN ABNORMAL [None]
  - BLOOD MAGNESIUM DECREASED [None]
  - CHEST X-RAY ABNORMAL [None]
  - DIARRHOEA [None]
  - DRUG ERUPTION [None]
  - ELECTROCARDIOGRAM ABNORMAL [None]
  - EYELID IRRITATION [None]
  - HAEMATOCRIT DECREASED [None]
  - HAEMOGLOBIN DECREASED [None]
  - INFLAMMATION [None]
  - LINEAR IGA DISEASE [None]
  - LUNG INFILTRATION [None]
  - MEAN CELL VOLUME INCREASED [None]
  - MOUTH ULCERATION [None]
  - ORAL PAIN [None]
  - ORAL PUSTULE [None]
  - ORAL SOFT TISSUE DISORDER [None]
  - PLATELET COUNT DECREASED [None]
  - PRURITUS [None]
  - RASH PAPULAR [None]
  - RASH VESICULAR [None]
  - RED BLOOD CELL COUNT DECREASED [None]
  - RIGHT VENTRICULAR SYSTOLIC PRESSURE INCREASED [None]
  - STAPHYLOCOCCAL BACTERAEMIA [None]
  - TONGUE ERUPTION [None]
  - VENTRICULAR HYPERTROPHY [None]
  - WHITE BLOOD CELL COUNT INCREASED [None]
